FAERS Safety Report 14255442 (Version 1)
Quarter: 2017Q4

REPORT INFORMATION
  Report Type: Report from Study
  Country: PL (occurrence: PL)
  Receive Date: 20171206
  Receipt Date: 20171206
  Transmission Date: 20180321
  Serious: Yes (Other)
  Sender: FDA-Public Use
  Company Number: PL-ROCHE-2030828

PATIENT
  Sex: Female
  Weight: 55 kg

DRUGS (5)
  1. METYPRED [Concomitant]
     Active Substance: METHYLPREDNISOLONE
     Route: 065
  2. ZELBORAF [Suspect]
     Active Substance: VEMURAFENIB
     Indication: MALIGNANT MELANOMA
     Dosage: 240MGX8, 2 X DAILY PER 4 TABLETS
     Route: 048
     Dates: start: 201608
  3. RUPAFIN [Concomitant]
     Active Substance: RUPATADINE FUMARATE
     Route: 065
  4. COTELLIC [Suspect]
     Active Substance: COBIMETINIB
     Indication: MALIGNANT MELANOMA
     Dosage: 20MGX3
     Route: 048
     Dates: start: 201703
  5. SULFASALAZINE DELAYED-RELEASE [Concomitant]
     Active Substance: SULFASALAZINE
     Route: 065

REACTIONS (10)
  - Diarrhoea [Recovering/Resolving]
  - Arthralgia [Recovering/Resolving]
  - Hypersensitivity [Recovering/Resolving]
  - Dysgeusia [Recovering/Resolving]
  - Rash [Recovering/Resolving]
  - Alopecia [Recovering/Resolving]
  - Body temperature fluctuation [Recovering/Resolving]
  - Decreased appetite [Recovering/Resolving]
  - Urticaria [Recovering/Resolving]
  - Abdominal pain [Recovering/Resolving]
